FAERS Safety Report 7809199-8 (Version None)
Quarter: 2011Q4

REPORT INFORMATION
  Report Type: 
  Country: None (occurrence: None)
  Receive Date: 20111012
  Receipt Date: 20111004
  Transmission Date: 20120403
  Serious: Yes (Hospitalization)
  Sender: FDA-Public Use
  Company Number: JP-SANOFI-AVENTIS-2011SA065729

PATIENT
  Age: 79 Year
  Sex: Female

DRUGS (6)
  1. ZOLPIDEM [Suspect]
     Route: 048
     Dates: end: 20110911
  2. ETODOLAC [Suspect]
     Route: 048
     Dates: start: 20110906, end: 20110920
  3. RADICUT [Suspect]
     Route: 042
     Dates: start: 20110905, end: 20110918
  4. ASPIRIN [Suspect]
     Route: 048
     Dates: start: 20110919, end: 20110921
  5. BETAXOLOL HCL [Suspect]
     Route: 048
     Dates: start: 20110908, end: 20110920
  6. FAMOTIDINE [Suspect]
     Route: 048
     Dates: start: 20110906

REACTIONS (1)
  - AGRANULOCYTOSIS [None]
